FAERS Safety Report 8988608 (Version 5)
Quarter: 2013Q2

REPORT INFORMATION
  Report Type: Spontaneous
  Country: JP (occurrence: JP)
  Receive Date: 20121228
  Receipt Date: 20130409
  Transmission Date: 20140414
  Serious: Yes (Hospitalization, Other)
  Sender: FDA-Public Use
  Company Number: JP-PFIZER INC-2012331056

PATIENT
  Age: 91 Year
  Sex: Female
  Weight: 45.1 kg

DRUGS (10)
  1. CELECOX [Suspect]
     Indication: BACK PAIN
     Dosage: 100 MG UID/QD
     Route: 048
     Dates: start: 20121207, end: 20121210
  2. CELECOX [Suspect]
     Indication: THORACIC VERTEBRAL FRACTURE
     Dosage: 100 MG, 2X/DAY
     Route: 048
     Dates: start: 20121211, end: 20121215
  3. FANTEZOLE [Concomitant]
     Dosage: UNK
  4. BLOPRESS [Concomitant]
     Indication: HYPERTENSION
     Dosage: UNK
  5. ADALAT CR [Concomitant]
     Indication: HYPERTENSION
     Dosage: UNK
  6. TAKEPRON [Concomitant]
     Indication: GASTRIC ULCER
     Dosage: UNK
  7. PLETAAL [Concomitant]
     Indication: LACUNAR INFARCTION
     Dosage: UNK
  8. THEODUR [Concomitant]
     Indication: BRONCHITIS CHRONIC
     Dosage: UNK
  9. LEVOGLUTAMIDE, SODIUM GUALENATE [Concomitant]
     Indication: GASTRIC ULCER
     Dosage: UNK
  10. MIYA BM [Concomitant]
     Indication: PROPHYLAXIS AGAINST DIARRHOEA
     Dosage: UNK

REACTIONS (3)
  - Enteritis [Recovered/Resolved]
  - Gastrointestinal ischaemia [Recovered/Resolved]
  - Intentional drug misuse [Unknown]
